FAERS Safety Report 17284510 (Version 1)
Quarter: 2020Q1

REPORT INFORMATION
  Report Type: Spontaneous
  Country: SK (occurrence: SK)
  Receive Date: 20200117
  Receipt Date: 20200117
  Transmission Date: 20200409
  Serious: Yes (Hospitalization, Other)
  Sender: FDA-Public Use
  Company Number: NVSC2020SK011057

PATIENT
  Age: 44 Year
  Sex: Female

DRUGS (2)
  1. CARIPRAZINE [Concomitant]
     Active Substance: CARIPRAZINE
     Indication: SCHIZOPHRENIA
     Dosage: 4.5 MG
     Route: 048
     Dates: start: 201904
  2. QUETIAPINE. [Suspect]
     Active Substance: QUETIAPINE
     Indication: PSYCHOTIC DISORDER
     Dosage: UNK
     Route: 065

REACTIONS (7)
  - Suicidal ideation [Recovering/Resolving]
  - Weight increased [Unknown]
  - Vertigo [Unknown]
  - Extrapyramidal disorder [Recovering/Resolving]
  - Type 2 diabetes mellitus [Unknown]
  - Drug ineffective for unapproved indication [Unknown]
  - Fatigue [Recovering/Resolving]
